FAERS Safety Report 15692048 (Version 2)
Quarter: 2019Q1

REPORT INFORMATION
  Report Type: Spontaneous
  Country: US (occurrence: US)
  Receive Date: 20181205
  Receipt Date: 20190129
  Transmission Date: 20190417
  Serious: Yes (Death, Other)
  Sender: FDA-Public Use
  Company Number: US-LA JOLLA PHARMACEUTICAL COMPANY-0000271

PATIENT
  Age: 56 Year
  Sex: Male
  Weight: 88 kg

DRUGS (7)
  1. NOREPINEPHRINE. [Concomitant]
     Active Substance: NOREPINEPHRINE
     Dosage: UNK
  2. VASOPRESSIN. [Concomitant]
     Active Substance: VASOPRESSIN
     Dosage: UNK
  3. GIAPREZA [Suspect]
     Active Substance: ANGIOTENSIN II
     Indication: SEPSIS
     Dosage: 80 NG/KG/MIN, UNK
     Route: 041
     Dates: start: 20181119, end: 20181119
  4. EPINEPHRINE. [Concomitant]
     Active Substance: EPINEPHRINE
     Dosage: UNK
  5. PRECEDEX [Concomitant]
     Active Substance: DEXMEDETOMIDINE HYDROCHLORIDE
     Dosage: UNK
  6. VECURONIUM [Concomitant]
     Active Substance: VECURONIUM BROMIDE
     Dosage: UNK
  7. FENTANYL. [Concomitant]
     Active Substance: FENTANYL
     Dosage: UNK

REACTIONS (2)
  - Septic shock [Fatal]
  - Hypotension [Unknown]

NARRATIVE: CASE EVENT DATE: 20181119
